FAERS Safety Report 13577401 (Version 2)
Quarter: 2017Q2

REPORT INFORMATION
  Report Type: Spontaneous
  Country: JP (occurrence: JP)
  Receive Date: 20170524
  Receipt Date: 20170629
  Transmission Date: 20170830
  Serious: Yes (Other)
  Sender: FDA-Public Use
  Company Number: JP-PFIZER INC-2017219757

PATIENT
  Age: 69 Year
  Sex: Male

DRUGS (2)
  1. ZITHROMAC SR 2G [Suspect]
     Active Substance: AZITHROMYCIN MONOHYDRATE
     Indication: SINUSITIS
     Dosage: 2 G, DAILY
     Route: 048
     Dates: start: 20170516
  2. LOXONIN [Concomitant]
     Active Substance: LOXOPROFEN SODIUM
     Indication: HEADACHE
     Dosage: UNK
     Route: 048
     Dates: start: 20170516

REACTIONS (4)
  - Restlessness [Unknown]
  - Delirium [Unknown]
  - Anal incontinence [Unknown]
  - Fall [Unknown]

NARRATIVE: CASE EVENT DATE: 20170516
